FAERS Safety Report 4714447-7 (Version None)
Quarter: 2005Q3

REPORT INFORMATION
  Report Type: 
  Country: None (occurrence: None)
  Receive Date: 20050712
  Receipt Date: 20050706
  Transmission Date: 20060218
  Serious: Yes (Hospitalization, Other)
  Sender: FDA-Public Use
  Company Number: NLWYE808207JUL05

PATIENT
  Age: 42 Year
  Sex: Female

DRUGS (2)
  1. EFFEXOR XR [Suspect]
     Indication: DEPRESSION
     Dosage: 75 MG 41X PER 1 DAY ORAL
     Route: 048
     Dates: start: 20050327, end: 20050327
  2. ALCOHOL (ETHANOL, , 0) [Suspect]
     Indication: DEPRESSION
     Dates: start: 20050327, end: 20050327

REACTIONS (10)
  - CONTUSION [None]
  - DIZZINESS [None]
  - FALL [None]
  - HYPOAESTHESIA [None]
  - INTENTIONAL MISUSE [None]
  - LIMB INJURY [None]
  - NAUSEA [None]
  - OVERDOSE [None]
  - SENSATION OF HEAVINESS [None]
  - SUICIDE ATTEMPT [None]
